FAERS Safety Report 5418699-X (Version None)
Quarter: 2007Q3

REPORT INFORMATION
  Report Type: 
  Country: None (occurrence: None)
  Receive Date: 20070817
  Receipt Date: 20070807
  Transmission Date: 20080115
  Serious: Yes (Hospitalization)
  Sender: FDA-Public Use
  Company Number: US-PFIZER INC-2007023905

PATIENT
  Sex: Female
  Weight: 59.4 kg

DRUGS (12)
  1. LYRICA [Suspect]
     Indication: NEUROPATHY PERIPHERAL
     Route: 048
  2. OXYCODONE HCL [Suspect]
     Indication: NEUROPATHY PERIPHERAL
     Route: 048
  3. NORVASC [Suspect]
  4. DIGOXIN [Concomitant]
     Dosage: DAILY DOSE:.125MG
     Route: 048
  5. PRILOSEC [Concomitant]
     Dosage: DAILY DOSE:20MG
     Route: 048
  6. DYAZIDE [Concomitant]
     Route: 048
  7. ELAVIL [Concomitant]
     Dosage: DAILY DOSE:50MG
     Route: 048
  8. METOPROLOL SUCCINATE [Concomitant]
     Dosage: DAILY DOSE:50MG
  9. OXYCONTIN [Concomitant]
  10. ALL OTHER THERAPEUTIC PRODUCTS [Concomitant]
  11. TOPROL-XL [Concomitant]
     Route: 048
  12. LEVOTHYROXINE SODIUM [Concomitant]
     Dosage: DAILY DOSE:100MG
     Route: 048

REACTIONS (3)
  - DEPRESSED LEVEL OF CONSCIOUSNESS [None]
  - DRUG HYPERSENSITIVITY [None]
  - SWELLING [None]
